FAERS Safety Report 17378932 (Version 1)
Quarter: 2020Q1

REPORT INFORMATION
  Report Type: Spontaneous
  Country: US (occurrence: US)
  Receive Date: 20200206
  Receipt Date: 20200206
  Transmission Date: 20200409
  Serious: Yes (Other)
  Sender: FDA-Public Use
  Company Number: US-ABBVIE-19K-163-2674585-00

PATIENT
  Age: 62 Year
  Sex: Male
  Weight: 118.04 kg

DRUGS (6)
  1. XELJANZ XR [Suspect]
     Active Substance: TOFACITINIB CITRATE
     Indication: RHEUMATOID ARTHRITIS
     Route: 065
     Dates: start: 2017, end: 2017
  2. XELJANZ XR [Suspect]
     Active Substance: TOFACITINIB CITRATE
     Route: 065
     Dates: start: 201812
  3. ACTEMRA [Suspect]
     Active Substance: TOCILIZUMAB
     Indication: RHEUMATOID ARTHRITIS
     Route: 065
  4. ENBREL [Suspect]
     Active Substance: ETANERCEPT
     Indication: RHEUMATOID ARTHRITIS
     Route: 065
  5. HUMIRA [Suspect]
     Active Substance: ADALIMUMAB
     Indication: RHEUMATOID ARTHRITIS
     Route: 058
  6. METHOTREXATE. [Concomitant]
     Active Substance: METHOTREXATE
     Indication: RHEUMATOID ARTHRITIS
     Dosage: DOSE:1ML, 100UNITS
     Route: 065

REACTIONS (11)
  - Glossodynia [Recovering/Resolving]
  - Fluid intake reduced [Unknown]
  - Tongue blistering [Recovering/Resolving]
  - Drug ineffective [Unknown]
  - Oral mucosal blistering [Recovering/Resolving]
  - Weight decreased [Unknown]
  - Hypophagia [Unknown]
  - Shoulder arthroplasty [Recovering/Resolving]
  - Oral pain [Recovering/Resolving]
  - Knee arthroplasty [Recovering/Resolving]
  - Adverse drug reaction [Unknown]

NARRATIVE: CASE EVENT DATE: 2017
